FAERS Safety Report 9131029 (Version 1)
Quarter: 2013Q1

REPORT INFORMATION
  Report Type: Spontaneous
  Country: BR (occurrence: BR)
  Receive Date: 20130301
  Receipt Date: 20130301
  Transmission Date: 20140127
  Serious: Yes (Other)
  Sender: FDA-Public Use
  Company Number: BR-BRISTOL-MYERS SQUIBB COMPANY-17418336

PATIENT
  Sex: Female

DRUGS (3)
  1. GLIFAGE XR [Suspect]
     Indication: DIABETES MELLITUS
     Dosage: 1 DF:4 TABSOF GILFAGE XR 500MG (1 IN MORNING AND 3 IN NIGHT)
     Dates: start: 20120101
  2. ENALAPRIL [Concomitant]
  3. LEVOTHYROXINE [Concomitant]

REACTIONS (2)
  - Haematochezia [Not Recovered/Not Resolved]
  - Diarrhoea [Not Recovered/Not Resolved]
